FAERS Safety Report 20844591 (Version 1)
Quarter: 2022Q2

REPORT INFORMATION
  Report Type: Spontaneous
  Country: US (occurrence: US)
  Receive Date: 20220518
  Receipt Date: 20220518
  Transmission Date: 20220720
  Serious: No
  Sender: FDA-Public Use
  Company Number: US-PFIZER INC-202200707859

PATIENT
  Age: 12 Year
  Sex: Male
  Weight: 68.4 kg

DRUGS (2)
  1. PAXLOVID [Suspect]
     Active Substance: NIRMATRELVIR\RITONAVIR
     Indication: COVID-19 treatment
     Dosage: UNK
  2. NICOTROL [Concomitant]
     Active Substance: NICOTINE
     Indication: Asthma
     Dosage: UNK

REACTIONS (3)
  - Product use complaint [Unknown]
  - Product size issue [Unknown]
  - Oropharyngeal pain [Unknown]
